FAERS Safety Report 6417014-2 (Version None)
Quarter: 2009Q4

REPORT INFORMATION
  Report Type: 
  Country: None (occurrence: None)
  Receive Date: 20091027
  Receipt Date: 20090925
  Transmission Date: 20100525
  Serious: Yes (Other)
  Sender: FDA-Public Use
  Company Number: GAM-141-09-LB

PATIENT
  Age: 11 Year
  Sex: Male

DRUGS (1)
  1. OCTAGAM 5 %         (HUMAN NORMAL IMMUNOGLOBULIN FOR IV ADMIN [Suspect]
     Indication: BRUTON'S AGAMMAGLOBULINAEMIA
     Dosage: 400 MG/KG; I.V.
     Route: 042

REACTIONS (7)
  - APHASIA [None]
  - INTRACRANIAL VENOUS SINUS THROMBOSIS [None]
  - MUSCULAR WEAKNESS [None]
  - SENSATION OF HEAVINESS [None]
  - SUPERIOR SAGITTAL SINUS THROMBOSIS [None]
  - TRANSVERSE SINUS THROMBOSIS [None]
  - TREATMENT NONCOMPLIANCE [None]
